FAERS Safety Report 8797980 (Version 1)
Quarter: 2012Q4

REPORT INFORMATION
  Report Type: 
  Country: US (occurrence: US)
  Receive Date: 20120919
  Receipt Date: 20120919
  Transmission Date: 20130627
  Serious: Yes (Death)
  Sender: FDA-Public Use
  Company Number: US-ROCHE-1128311

PATIENT
  Sex: Female

DRUGS (4)
  1. AVASTIN [Suspect]
     Indication: PRODUCT USED FOR UNKNOWN INDICATION
     Route: 065
     Dates: start: 20051207
  2. AVASTIN [Suspect]
     Route: 065
     Dates: start: 20060104
  3. AVASTIN [Suspect]
     Route: 065
     Dates: start: 20060126
  4. AVASTIN [Suspect]
     Route: 065
     Dates: start: 20060215

REACTIONS (1)
  - Death [Fatal]
